FAERS Safety Report 10699332 (Version 3)
Quarter: 2015Q1

REPORT INFORMATION
  Report Type: Spontaneous
  Country: BR (occurrence: BR)
  Receive Date: 20150109
  Receipt Date: 20150124
  Transmission Date: 20150721
  Serious: Yes (Other)
  Sender: FDA-Public Use
  Company Number: BR-ABBVIE-15K-020-1329946-00

PATIENT
  Age: 26 Year
  Sex: Male
  Weight: 63 kg

DRUGS (3)
  1. HUMIRA [Suspect]
     Active Substance: ADALIMUMAB
     Dosage: INDUCTION DOSE
     Route: 058
     Dates: start: 2014, end: 2014
  2. HUMIRA [Suspect]
     Active Substance: ADALIMUMAB
     Indication: CROHN^S DISEASE
     Dosage: INDUCTION DOSE
     Route: 058
     Dates: start: 20141009, end: 20141009
  3. HUMIRA [Suspect]
     Active Substance: ADALIMUMAB
     Dosage: MAINTENANCE DOSE
     Route: 058

REACTIONS (9)
  - Drug ineffective [Unknown]
  - Suicidal ideation [Recovering/Resolving]
  - Asthenia [Not Recovered/Not Resolved]
  - Gastrointestinal haemorrhage [Recovering/Resolving]
  - Feeling abnormal [Recovering/Resolving]
  - Depression [Recovering/Resolving]
  - Diarrhoea [Recovering/Resolving]
  - Road traffic accident [Unknown]
  - Anxiety [Unknown]

NARRATIVE: CASE EVENT DATE: 2014
